FAERS Safety Report 9100047 (Version 1)
Quarter: 2013Q1

REPORT INFORMATION
  Report Type: Report from Study
  Country: US (occurrence: US)
  Receive Date: 20130214
  Receipt Date: 20130214
  Transmission Date: 20140127
  Serious: No
  Sender: FDA-Public Use
  Company Number: US-VERTEX PHARMACEUTICALS INC.-2013-002002

PATIENT
  Age: 52 Year
  Sex: Male
  Weight: 96 kg

DRUGS (7)
  1. VX-950 (TELAPREVIR) [Suspect]
     Indication: HEPATITIS C
     Dosage: 750 MG, TID
     Route: 048
  2. PEGASYS [Suspect]
     Indication: HEPATITIS C
     Dosage: 180 ?G, UNK
  3. RIBAVIRIN [Suspect]
     Indication: HEPATITIS C
     Dosage: 200 MG, UNK
  4. ALBUTEROL [Concomitant]
     Dosage: 0.083%
  5. QVAR [Concomitant]
  6. AMITRIPTYLIN [Concomitant]
     Dosage: 150 MG, UNK
  7. BUSPAR [Concomitant]
     Dosage: 5 MG, UNK

REACTIONS (5)
  - Disturbance in attention [Recovered/Resolved]
  - Mental impairment [Recovered/Resolved]
  - Sluggishness [Recovered/Resolved]
  - Asthenia [Recovered/Resolved]
  - Dysgeusia [Recovered/Resolved]
